FAERS Safety Report 9899467 (Version 1)
Quarter: 2014Q1

REPORT INFORMATION
  Report Type: Spontaneous
  Country: US (occurrence: US)
  Receive Date: 20140214
  Receipt Date: 20140214
  Transmission Date: 20141002
  Serious: Yes (Other)
  Sender: FDA-Public Use
  Company Number: US-PFIZER INC-2014039051

PATIENT
  Sex: 0

DRUGS (1)
  1. AZITHROMYCIN [Suspect]
     Dosage: 100/5

REACTIONS (2)
  - Pneumonia [Unknown]
  - Incorrect product storage [Unknown]
